FAERS Safety Report 7843833-1 (Version None)
Quarter: 2011Q4

REPORT INFORMATION
  Report Type: 
  Country: None (occurrence: None)
  Receive Date: 20111025
  Receipt Date: 20111017
  Transmission Date: 20120403
  Serious: Yes (Death, Hospitalization)
  Sender: FDA-Public Use
  Company Number: US-GILEAD-2011-0043564

PATIENT

DRUGS (2)
  1. LETAIRIS [Suspect]
     Indication: SCLERODERMA
  2. LETAIRIS [Suspect]
     Indication: PULMONARY HYPERTENSION
     Route: 048
     Dates: start: 20100303

REACTIONS (7)
  - MYOCARDIAL INFARCTION [None]
  - PULMONARY OEDEMA [None]
  - LIVER FUNCTION TEST ABNORMAL [None]
  - HYPOXIC-ISCHAEMIC ENCEPHALOPATHY [None]
  - TORSADE DE POINTES [None]
  - CARDIAC ARREST [None]
  - PLATELET COUNT DECREASED [None]
